FAERS Safety Report 9299967 (Version 2)
Quarter: 2013Q1

REPORT INFORMATION
  Report Type: Spontaneous
  Country: MX (occurrence: None)
  Receive Date: 20121101
  Receipt Date: 20130214
  Transmission Date: 20140127
  Serious: Yes (Death)
  Sender: FDA-Public Use
  Company Number: 12-2364

PATIENT
  Age: 2 Year
  Sex: Male

DRUGS (4)
  1. XEOMIN [Suspect]
     Indication: CEREBRAL PALSY
     Route: 030
     Dates: start: 20120727, end: 20120727
  2. XEOMIN [Suspect]
     Indication: MUSCLE SPASTICITY
     Route: 030
     Dates: start: 20120727, end: 20120727
  3. VALPROIC ACID [Concomitant]
  4. RISPERIDONE (RISPERIDONE) [Concomitant]

REACTIONS (6)
  - Cardiac arrest [None]
  - Cardiogenic shock [None]
  - Cardiopulmonary failure [None]
  - Endotracheal intubation complication [None]
  - Laryngeal oedema [None]
  - Hypersensitivity [None]
